FAERS Safety Report 5218886-X (Version None)
Quarter: 2007Q1

REPORT INFORMATION
  Report Type: 
  Country: None (occurrence: None)
  Receive Date: 20070125
  Receipt Date: 20070112
  Transmission Date: 20070707
  Serious: Yes (Hospitalization)
  Sender: FDA-Public Use
  Company Number: US-JNJFOC-20070103950

PATIENT
  Age: 38 Year
  Sex: Male

DRUGS (5)
  1. FENTANYL [Suspect]
     Indication: DRUG USE FOR UNKNOWN INDICATION
  2. OXYCODONE HCL [Suspect]
     Indication: DRUG USE FOR UNKNOWN INDICATION
  3. BENZODIAZEPINE [Suspect]
     Indication: DRUG USE FOR UNKNOWN INDICATION
  4. COCAINE [Suspect]
     Indication: DRUG USE FOR UNKNOWN INDICATION
  5. AMMONIA [Suspect]
     Indication: INTENTIONAL DRUG MISUSE

REACTIONS (8)
  - AGITATION [None]
  - BLOOD BICARBONATE INCREASED [None]
  - DRUG SCREEN POSITIVE [None]
  - ELECTROCARDIOGRAM QT CORRECTED INTERVAL PROLONGED [None]
  - HEART RATE INCREASED [None]
  - MULTIPLE DRUG OVERDOSE [None]
  - RESPIRATORY RATE INCREASED [None]
  - SUICIDE ATTEMPT [None]
